FAERS Safety Report 8365939-3 (Version None)
Quarter: 2012Q2

REPORT INFORMATION
  Report Type: 
  Country: None (occurrence: None)
  Receive Date: 20120517
  Receipt Date: 20120514
  Transmission Date: 20120825
  Serious: No
  Sender: FDA-Public Use
  Company Number: US-PFIZER INC-2012117688

PATIENT
  Sex: Male
  Weight: 99.8 kg

DRUGS (10)
  1. ASCORBIC ACID [Concomitant]
     Dosage: UNK
  2. SIMVASTATIN [Concomitant]
     Dosage: UNK
  3. NEXIUM [Concomitant]
     Dosage: UNK
  4. ALLOPURINOL [Concomitant]
     Indication: GOUT
     Dosage: UNK
  5. TRAMADOL [Concomitant]
     Indication: ARTHRITIS
     Dosage: UNK
  6. ACETYLSALICYLIC ACID [Concomitant]
     Dosage: 81 MG, DAILY
  7. SUTENT [Suspect]
     Dosage: 25 MG DAILY (DAY 19 OF 42 DAY CYCLE)
     Dates: start: 20120508
  8. DOXAZOSIN [Concomitant]
     Dosage: UNK
  9. SUTENT [Suspect]
     Indication: METASTATIC RENAL CELL CARCINOMA
     Dosage: 37.5 MG, (25MG+12.5 MG)UNK
     Dates: start: 20120426
  10. ATENOLOL [Concomitant]
     Dosage: UNK

REACTIONS (4)
  - JOINT SWELLING [None]
  - FEELING ABNORMAL [None]
  - STOMATITIS [None]
  - MUSCLE SPASMS [None]
